FAERS Safety Report 6836774-X (Version None)
Quarter: 2010Q3

REPORT INFORMATION
  Report Type: 
  Country: None (occurrence: None)
  Receive Date: 20100708
  Receipt Date: 20100629
  Transmission Date: 20110219
  Serious: Yes (Life-Threatening, Other)
  Sender: FDA-Public Use
  Company Number: 627852

PATIENT
  Age: 47 Year
  Sex: Male
  Weight: 84.6 kg

DRUGS (8)
  1. PRECEDEX [Suspect]
     Indication: CORONARY ARTERY BYPASS
     Dosage: 400 MCG/100 ML, 0.2-0.7 MCG/KG/HR, INTRAVENOUS
     Route: 042
     Dates: start: 20100426, end: 20100426
  2. ASCORBIC ACID [Concomitant]
  3. MULTI-VITAMINS [Concomitant]
  4. METFORMIN [Concomitant]
  5. LISINOPRIL AND HYDROCHLOROTHIAZIDE [Concomitant]
  6. CARVEDILOL [Concomitant]
  7. LANTUS [Concomitant]
  8. PRAVASTATIN [Concomitant]

REACTIONS (5)
  - BRADYCARDIA [None]
  - HAEMOTHORAX [None]
  - NEPHROPATHY [None]
  - PRESYNCOPE [None]
  - PULSE ABSENT [None]
